FAERS Safety Report 9281412 (Version 2)
Quarter: 2013Q2

REPORT INFORMATION
  Report Type: Spontaneous
  Country: PL (occurrence: None)
  Receive Date: 20130502
  Receipt Date: 20130605
  Transmission Date: 20140414
  Serious: Yes (Hospitalization, Other)
  Sender: FDA-Public Use
  Company Number: 2013RR-68324

PATIENT
  Age: 6 Year
  Sex: Male

DRUGS (2)
  1. CEFUROXIME [Suspect]
     Indication: OTITIS MEDIA
     Route: 048
  2. AMOXICILLIN [Suspect]
     Indication: OTITIS MEDIA
     Route: 048

REACTIONS (2)
  - Diarrhoea [None]
  - Clostridium difficile colitis [None]
